FAERS Safety Report 23282777 (Version 1)
Quarter: 2023Q4

REPORT INFORMATION
  Report Type: Report from Study
  Country: US (occurrence: US)
  Receive Date: 20231211
  Receipt Date: 20231211
  Transmission Date: 20240110
  Serious: Yes (Other)
  Sender: FDA-Public Use
  Company Number: US-OTSUKA-2023_023206

PATIENT
  Age: 36 Year
  Sex: Female
  Weight: 91.7 kg

DRUGS (2)
  1. TOLVAPTAN [Suspect]
     Active Substance: TOLVAPTAN
     Indication: Congenital cystic kidney disease
     Dosage: 45 MG, IN THE MORNING (AM)
     Route: 065
     Dates: start: 20230817
  2. TOLVAPTAN [Suspect]
     Active Substance: TOLVAPTAN
     Dosage: 15 MG, (8 HOURS LATER)
     Route: 065
     Dates: start: 20230817

REACTIONS (10)
  - Nephrolithiasis [Unknown]
  - Pain [Not Recovered/Not Resolved]
  - Urine output decreased [Unknown]
  - Nausea [Not Recovered/Not Resolved]
  - Weight increased [Not Recovered/Not Resolved]
  - Fatigue [Not Recovered/Not Resolved]
  - Dry mouth [Not Recovered/Not Resolved]
  - Polyuria [Not Recovered/Not Resolved]
  - Thirst [Not Recovered/Not Resolved]
  - Product dose omission issue [Unknown]

NARRATIVE: CASE EVENT DATE: 20230818
